FAERS Safety Report 18097382 (Version 1)
Quarter: 2020Q3

REPORT INFORMATION
  Report Type: Spontaneous
  Country: US (occurrence: US)
  Receive Date: 20200731
  Receipt Date: 20200731
  Transmission Date: 20201103
  Serious: Yes (Other)
  Sender: FDA-Public Use
  Company Number: None

PATIENT
  Age: 57 Year
  Sex: Female
  Weight: 85.5 kg

DRUGS (7)
  1. DULOXETINE HYDROCHLORIDE. [Suspect]
     Active Substance: DULOXETINE HYDROCHLORIDE
     Indication: MAJOR DEPRESSION
     Dosage: ?          QUANTITY:1 CAPSULE(S);?
     Route: 048
     Dates: start: 20200501, end: 20200730
  2. ZYRTEC 10M [Concomitant]
  3. TYLENOL [Concomitant]
     Active Substance: ACETAMINOPHEN
  4. ESTRADIOL. [Concomitant]
     Active Substance: ESTRADIOL
  5. PROGESTERONE. [Concomitant]
     Active Substance: PROGESTERONE
  6. MULTIVITAMIN (NATURE MADE) [Concomitant]
  7. LAMONTAGNE ER 200MG [Concomitant]

REACTIONS (3)
  - Drug ineffective [None]
  - Product substitution issue [None]
  - Depression [None]

NARRATIVE: CASE EVENT DATE: 20200701
